FAERS Safety Report 9012794 (Version 1)
Quarter: 2013Q1

REPORT INFORMATION
  Report Type: Spontaneous
  Country: US (occurrence: US)
  Receive Date: 20130114
  Receipt Date: 20130114
  Transmission Date: 20140127
  Serious: Yes (Hospitalization)
  Sender: FDA-Public Use
  Company Number: US-MERCK-1301USA003276

PATIENT
  Age: 8 Year
  Sex: Female

DRUGS (10)
  1. SINGULAIR [Suspect]
     Indication: PRODUCT USED FOR UNKNOWN INDICATION
     Dosage: 5 MG, QD
  2. SINGULAIR [Suspect]
     Indication: RESPIRATORY DISORDER
  3. DESLORATADINE [Suspect]
  4. BRICANYL [Suspect]
     Dosage: 2 DF, QID
  5. SEREVENT [Suspect]
     Dosage: 25 A?G, BID
  6. SERETIDE [Suspect]
     Dosage: 2 DF, QD
  7. XOLAIR [Suspect]
     Dosage: 150 MG 1/MONTH
     Route: 058
  8. XOLAIR [Suspect]
     Dosage: 150MG, 1/MONTH
     Route: 058
  9. XOLAIR [Suspect]
     Dosage: 150 MG, 1/MONTH
     Route: 058
  10. VENTOLIN HFA [Concomitant]

REACTIONS (5)
  - Tachycardia [Unknown]
  - Paraesthesia [Unknown]
  - Muscular weakness [Unknown]
  - Hot flush [Unknown]
  - Headache [Unknown]
